FAERS Safety Report 5589292-3 (Version None)
Quarter: 2008Q1

REPORT INFORMATION
  Report Type: 
  Country: None (occurrence: None)
  Receive Date: 20080109
  Receipt Date: 20080109
  Transmission Date: 20080703
  Serious: Yes (Hospitalization)
  Sender: FDA-Public Use
  Company Number: None

PATIENT
  Age: 48 Year
  Sex: Female
  Weight: 33.5662 kg

DRUGS (7)
  1. QUETIAPINE FUMARATE [Suspect]
     Indication: ANOREXIA NERVOSA
     Dates: start: 20071114
  2. QUETIAPINE FUMARATE [Suspect]
     Indication: BIPOLAR DISORDER
     Dates: start: 20071114
  3. QUETIAPINE FUMARATE [Suspect]
     Indication: ANOREXIA NERVOSA
     Dates: start: 20071226
  4. QUETIAPINE FUMARATE [Suspect]
     Indication: BIPOLAR DISORDER
     Dates: start: 20071226
  5. BENADRYL [Concomitant]
  6. IMITREX [Concomitant]
  7. LEVOTHYROXINE SODIUM [Concomitant]

REACTIONS (2)
  - BIPOLAR DISORDER [None]
  - CONDITION AGGRAVATED [None]
